FAERS Safety Report 6506167-3 (Version None)
Quarter: 2009Q4

REPORT INFORMATION
  Report Type: 
  Country: None (occurrence: None)
  Receive Date: 20091218
  Receipt Date: 20091214
  Transmission Date: 20100525
  Serious: Yes (Other)
  Sender: FDA-Public Use
  Company Number: US-ELI_LILLY_AND_COMPANY-US200912003505

PATIENT
  Age: 49 Year
  Sex: Male

DRUGS (2)
  1. HUMALOG [Suspect]
     Indication: DIABETES MELLITUS
  2. HUMALOG [Suspect]
     Dosage: UNK, UNK
     Dates: start: 20090101

REACTIONS (5)
  - BLOOD GLUCOSE INCREASED [None]
  - DEVICE MISUSE [None]
  - DIALYSIS [None]
  - FLUID RETENTION [None]
  - HYPERTENSION [None]
